FAERS Safety Report 6525687-9 (Version None)
Quarter: 2010Q1

REPORT INFORMATION
  Report Type: 
  Country: None (occurrence: None)
  Receive Date: 20100104
  Receipt Date: 20091222
  Transmission Date: 20100710
  Serious: Yes (Other)
  Sender: FDA-Public Use
  Company Number: US-JNJCH-2009032942

PATIENT
  Age: 71 Year
  Sex: Female
  Weight: 62.6 kg

DRUGS (4)
  1. SUDAFED S.A. [Suspect]
     Indication: HYPERSENSITIVITY
     Dosage: TEXT:ONE TABLET TWICE DAILY
     Route: 048
  2. FISH OIL [Concomitant]
     Indication: BLOOD CHOLESTEROL
     Dosage: TEXT:UNSPECIFIED TWICE DAILY
     Route: 065
  3. CITRACAL [Concomitant]
     Indication: MINERAL SUPPLEMENTATION
     Dosage: TEXT:UNSPECIFIED TWICE DAILY
     Route: 065
  4. ASPIRIN [Concomitant]
     Indication: BLOOD CHOLESTEROL
     Dosage: TEXT:ONE DAILY
     Route: 065

REACTIONS (1)
  - BLOOD PRESSURE INCREASED [None]
